FAERS Safety Report 11689862 (Version 1)
Quarter: 2015Q4

REPORT INFORMATION
  Report Type: Spontaneous
  Country: ES (occurrence: ES)
  Receive Date: 20151102
  Receipt Date: 20151102
  Transmission Date: 20160304
  Serious: Yes (Other)
  Sender: FDA-Public Use
  Company Number: ES-009507513-1510ESP015130

PATIENT
  Age: 67 Year
  Sex: Male

DRUGS (8)
  1. VITAMINS (UNSPECIFIED) [Concomitant]
     Active Substance: VITAMINS
  2. TEMOZOLOMIDE. [Suspect]
     Active Substance: TEMOZOLOMIDE
     Route: 048
  3. ZOLPIDEM TARTRATE. [Concomitant]
     Active Substance: ZOLPIDEM TARTRATE
     Route: 048
  4. ACETAMINOPHEN. [Concomitant]
     Active Substance: ACETAMINOPHEN
  5. AMLODIPINE [Concomitant]
     Active Substance: AMLODIPINE BESYLATE
  6. NAPROXEN. [Concomitant]
     Active Substance: NAPROXEN
  7. TOLTERODINE [Concomitant]
     Active Substance: TOLTERODINE
  8. TRAVOPROST [Concomitant]
     Active Substance: TRAVOPROST

REACTIONS (1)
  - Oesophagitis [Unknown]
